FAERS Safety Report 20991197 (Version 1)
Quarter: 2022Q2

REPORT INFORMATION
  Report Type: Spontaneous
  Country: US (occurrence: US)
  Receive Date: 20220622
  Receipt Date: 20220622
  Transmission Date: 20220720
  Serious: No
  Sender: FDA-Public Use
  Company Number: US-IGSA-BIG0016311

PATIENT
  Age: 41 Year
  Sex: Male
  Weight: 126.9 kg

DRUGS (4)
  1. HYPERRAB [Suspect]
     Active Substance: HUMAN RABIES VIRUS IMMUNE GLOBULIN
     Indication: Immunisation
     Dosage: UNK
     Route: 030
     Dates: start: 20210816
  2. HYPERRAB [Suspect]
     Active Substance: HUMAN RABIES VIRUS IMMUNE GLOBULIN
     Indication: Animal bite
  3. RABIES VACCINE [Suspect]
     Active Substance: RABIES VACCINE
     Indication: Immunisation
     Dosage: UNK
     Route: 030
     Dates: start: 20210816, end: 20210816
  4. RABIES VACCINE [Suspect]
     Active Substance: RABIES VACCINE
     Indication: Animal bite

REACTIONS (13)
  - Headache [Recovering/Resolving]
  - Nausea [Recovering/Resolving]
  - Paraesthesia [Recovering/Resolving]
  - Dizziness [Recovering/Resolving]
  - Muscle spasms [Recovering/Resolving]
  - Condition aggravated [Recovering/Resolving]
  - Pyrexia [Recovering/Resolving]
  - Vision blurred [Recovering/Resolving]
  - Back pain [Recovering/Resolving]
  - Neck pain [Recovering/Resolving]
  - Herpes zoster [Recovering/Resolving]
  - Product administered at inappropriate site [Unknown]
  - Injection site pruritus [Recovering/Resolving]

NARRATIVE: CASE EVENT DATE: 20210801
